FAERS Safety Report 4314805-9 (Version None)
Quarter: 2004Q1

REPORT INFORMATION
  Report Type: 
  Country: None (occurrence: None)
  Receive Date: 20040308
  Receipt Date: 20040115
  Transmission Date: 20041129
  Serious: Yes (Death)
  Sender: FDA-Public Use
  Company Number: 2004-BP-01656RP

PATIENT
  Age: 70 Year
  Sex: Female

DRUGS (1)
  1. AGGRENOX [Suspect]
     Dosage: PO
     Route: 048
     Dates: start: 20031020

REACTIONS (1)
  - TREATMENT NONCOMPLIANCE [None]
